FAERS Safety Report 19068299 (Version 1)
Quarter: 2021Q1

REPORT INFORMATION
  Report Type: Spontaneous
  Country: NL (occurrence: IT)
  Receive Date: 20210329
  Receipt Date: 20210329
  Transmission Date: 20210420
  Serious: Yes (Other)
  Sender: FDA-Public Use
  Company Number: IT-FRESENIUS KABI-FK202102817

PATIENT
  Age: 35 Year
  Sex: Male

DRUGS (5)
  1. LEVOFLOXACIN (MANUFACTURER UNKNOWN) [Suspect]
     Active Substance: LEVOFLOXACIN
     Indication: EPIDIDYMITIS
     Route: 065
  2. IBUPROFEN. [Interacting]
     Active Substance: IBUPROFEN
     Indication: EPIDIDYMITIS
     Route: 065
  3. CARIPRAZINE HYDROCHLORIDE [Interacting]
     Active Substance: CARIPRAZINE HYDROCHLORIDE
     Indication: DEPRESSION
  4. CARIPRAZINE HYDROCHLORIDE [Interacting]
     Active Substance: CARIPRAZINE HYDROCHLORIDE
     Indication: OFF LABEL USE
     Route: 048
  5. CIPROFLOXACIN (MANUFACTURER UNKNOWN) [Interacting]
     Active Substance: CIPROFLOXACIN
     Indication: EPIDIDYMITIS
     Route: 065

REACTIONS (4)
  - Epididymitis [Unknown]
  - Drug interaction [Recovered/Resolved]
  - Drug ineffective [Not Recovered/Not Resolved]
  - Off label use [Not Recovered/Not Resolved]
